FAERS Safety Report 19633685 (Version 2)
Quarter: 2021Q3

REPORT INFORMATION
  Report Type: Report from Study
  Country: US (occurrence: US)
  Receive Date: 20210729
  Receipt Date: 20210820
  Transmission Date: 20211014
  Serious: No
  Sender: FDA-Public Use
  Company Number: US-ORGANON-O2107USA002286

PATIENT
  Sex: Female

DRUGS (1)
  1. IMPLANON [Suspect]
     Active Substance: ETONOGESTREL
     Indication: POLYCYSTIC OVARIES
     Dosage: 1 DOSAGE FORM
     Route: 059

REACTIONS (5)
  - Weight increased [Unknown]
  - Product use in unapproved indication [Unknown]
  - Incorrect product administration duration [Unknown]
  - Hormone level abnormal [Unknown]
  - Malaise [Unknown]

NARRATIVE: CASE EVENT DATE: 202004
